FAERS Safety Report 17572049 (Version 1)
Quarter: 2020Q1

REPORT INFORMATION
  Report Type: Report from Study
  Country: IT (occurrence: IT)
  Receive Date: 20200323
  Receipt Date: 20200323
  Transmission Date: 20200409
  Serious: Yes (Other)
  Sender: FDA-Public Use
  Company Number: IT-PFIZER INC-2020121648

PATIENT
  Age: 42 Year
  Sex: Male

DRUGS (1)
  1. XANAX [Suspect]
     Active Substance: ALPRAZOLAM
     Indication: DRUG ABUSE
     Dosage: 10 ML, SINGLE
     Route: 048
     Dates: start: 20200223, end: 20200223

REACTIONS (4)
  - Dyspnoea [Recovering/Resolving]
  - Chest pain [Recovering/Resolving]
  - Drug abuse [Recovering/Resolving]
  - Intentional self-injury [Recovering/Resolving]

NARRATIVE: CASE EVENT DATE: 20200223
